FAERS Safety Report 21540407 (Version 1)
Quarter: 2022Q4

REPORT INFORMATION
  Report Type: Spontaneous
  Country: JP (occurrence: JP)
  Receive Date: 20221102
  Receipt Date: 20221102
  Transmission Date: 20230112
  Serious: Yes (Death, Hospitalization)
  Sender: FDA-Public Use
  Company Number: JP-CHUGAI-2022020356

PATIENT
  Age: 77 Year
  Sex: Female
  Weight: 72.6 kg

DRUGS (5)
  1. TECENTRIQ [Suspect]
     Active Substance: ATEZOLIZUMAB
     Indication: Hepatocellular carcinoma
     Dosage: 1200 MILLIGRAM, ONCE/3WEEKS?MOST RECENT DOSE: 02/NOV/2021
     Route: 041
     Dates: start: 20201222
  2. AVASTIN [Suspect]
     Active Substance: BEVACIZUMAB
     Indication: Hepatocellular carcinoma
     Dosage: 1000 MILLIGRAM, ONCE/3WEEKS?MOST RECENT DOSE: 02/NOV/2021
     Route: 041
     Dates: start: 20201222
  3. LEVOTHYROXINE SODIUM [Concomitant]
     Active Substance: LEVOTHYROXINE SODIUM
     Dosage: UNK
     Route: 065
     Dates: end: 20211227
  4. CILNIDIPINE [Concomitant]
     Active Substance: CILNIDIPINE
     Dosage: UNK
     Route: 065
     Dates: end: 20211227
  5. NEXIUM [Concomitant]
     Active Substance: ESOMEPRAZOLE MAGNESIUM
     Dosage: UNK
     Route: 065
     Dates: end: 20211227

REACTIONS (2)
  - Hepatocellular carcinoma [Fatal]
  - Ascites [Recovering/Resolving]

NARRATIVE: CASE EVENT DATE: 20211026
